FAERS Safety Report 9210373 (Version 1)
Quarter: 2013Q2

REPORT INFORMATION
  Report Type: Spontaneous
  Country: IT (occurrence: IT)
  Receive Date: 20130404
  Receipt Date: 20130404
  Transmission Date: 20140414
  Serious: Yes (Other)
  Sender: FDA-Public Use
  Company Number: IT-TEVA-395720ISR

PATIENT
  Age: 52 Year
  Sex: Female

DRUGS (3)
  1. ENALAPRIL/IDROCLORITIAZIDE [Suspect]
     Indication: HYPERTENSION
     Dosage: 1 DOSAGE FORMS DAILY;
     Route: 048
     Dates: start: 20130101, end: 20130126
  2. DOXAZOSINA [Suspect]
     Indication: HYPERTENSION
     Dosage: 1 DOSAGE FORMS DAILY;
     Route: 048
     Dates: start: 20130101, end: 20130126
  3. TORASEMIDE [Suspect]
     Indication: HYPERTENSION
     Dosage: 1 DOSAGE FORMS DAILY;
     Route: 048
     Dates: start: 20130101, end: 20130126

REACTIONS (2)
  - Hypertensive crisis [Recovering/Resolving]
  - Drug ineffective [Recovering/Resolving]
